FAERS Safety Report 15737088 (Version 2)
Quarter: 2018Q4

REPORT INFORMATION
  Report Type: Spontaneous
  Country: JP (occurrence: JP)
  Receive Date: 20181218
  Receipt Date: 20181231
  Transmission Date: 20190205
  Serious: Yes (Hospitalization, Other)
  Sender: FDA-Public Use
  Company Number: JP-AMGEN-JPNSP2018180384

PATIENT
  Age: 58 Year
  Sex: Male
  Weight: 76 kg

DRUGS (13)
  1. RHEUMATREX [Suspect]
     Active Substance: METHOTREXATE SODIUM
     Dosage: 10 MG, QWK
     Route: 065
     Dates: start: 20160324
  2. RHEUMATREX [Suspect]
     Active Substance: METHOTREXATE SODIUM
     Dosage: 8 MG, UNK
     Route: 065
     Dates: start: 20160107
  3. PROGRAF [Suspect]
     Active Substance: TACROLIMUS\TACROLIMUS ANHYDROUS
     Indication: RHEUMATOID ARTHRITIS
     Dosage: 3 MG, UNK
     Route: 048
     Dates: start: 201704
  4. BELSOMRA [Concomitant]
     Active Substance: SUVOREXANT
     Dosage: UNK
  5. METOLATE [Concomitant]
     Active Substance: METHOTREXATE
     Dosage: UNK
  6. NITROPEN [Concomitant]
     Active Substance: NITROGLYCERIN
     Dosage: UNK
  7. AVOLVE [Concomitant]
     Active Substance: DUTASTERIDE
     Dosage: UNK
  8. ENBREL [Suspect]
     Active Substance: ETANERCEPT
     Indication: RHEUMATOID ARTHRITIS
     Dosage: 50 MG, WEEKLY
     Route: 058
     Dates: start: 20160519, end: 20180105
  9. ADALAT [Concomitant]
     Active Substance: NIFEDIPINE
     Dosage: UNK
  10. RHEUMATREX [Suspect]
     Active Substance: METHOTREXATE SODIUM
     Indication: RHEUMATOID ARTHRITIS
     Dosage: 6 MG, QWK
     Route: 048
     Dates: start: 20151217, end: 20170427
  11. TAKECAB [Concomitant]
     Active Substance: VONOPRAZAN FUMURATE
     Dosage: UNK
  12. ROSUVASTATIN. [Concomitant]
     Active Substance: ROSUVASTATIN
     Dosage: UNK
  13. FRANDOL [Concomitant]
     Active Substance: ISOSORBIDE DINITRATE
     Dosage: UNK

REACTIONS (4)
  - Interstitial lung disease [Recovered/Resolved]
  - Cell marker increased [Unknown]
  - Immunosuppression [Unknown]
  - Therapeutic response decreased [Unknown]

NARRATIVE: CASE EVENT DATE: 201609
